FAERS Safety Report 19175600 (Version 3)
Quarter: 2021Q2

REPORT INFORMATION
  Report Type: Spontaneous
  Country: PL (occurrence: PL)
  Receive Date: 20210423
  Receipt Date: 20210521
  Transmission Date: 20210717
  Serious: Yes (Death, Hospitalization, Other)
  Sender: FDA-Public Use
  Company Number: PL-PFIZER INC-2021408307

PATIENT
  Age: 5 Year
  Sex: Female

DRUGS (5)
  1. VALPROIC ACID. [Concomitant]
     Active Substance: VALPROIC ACID
     Dosage: UNK
  2. PHENOBARBITAL. [Concomitant]
     Active Substance: PHENOBARBITAL
     Dosage: UNK
  3. LEVETIRACETAM. [Suspect]
     Active Substance: LEVETIRACETAM
     Dosage: UNK
  4. CLOBAZAM. [Concomitant]
     Active Substance: CLOBAZAM
     Dosage: UNK
  5. PHENYTOIN. [Concomitant]
     Active Substance: PHENYTOIN
     Dosage: UNK

REACTIONS (8)
  - Hepatic failure [Fatal]
  - Encephalopathy [Unknown]
  - Hyperammonaemia [Unknown]
  - Coagulopathy [Fatal]
  - Condition aggravated [Unknown]
  - Rotavirus infection [Unknown]
  - Epilepsy [Unknown]
  - Hyperlactacidaemia [Unknown]
